FAERS Safety Report 20344316 (Version 1)
Quarter: 2022Q1

REPORT INFORMATION
  Report Type: Spontaneous
  Country: US (occurrence: US)
  Receive Date: 20220118
  Receipt Date: 20220118
  Transmission Date: 20220423
  Serious: No
  Sender: FDA-Public Use
  Company Number: US-GSKCCFUS-Case-01267103_AE-74106

PATIENT
  Age: 60 Year
  Sex: Female

DRUGS (1)
  1. SOTROVIMAB [Suspect]
     Active Substance: SOTROVIMAB
     Indication: COVID-19
     Dosage: 500 MG, 62.5 MG/ML
     Route: 042
     Dates: start: 20220110

REACTIONS (5)
  - Hunger [Recovered/Resolved]
  - Swelling face [Not Recovered/Not Resolved]
  - Nasopharyngitis [Unknown]
  - Ear pain [Not Recovered/Not Resolved]
  - Hypotension [Not Recovered/Not Resolved]

NARRATIVE: CASE EVENT DATE: 20220112
